FAERS Safety Report 9429190 (Version 1)
Quarter: 2013Q3

REPORT INFORMATION
  Report Type: Spontaneous
  Country: US (occurrence: US)
  Receive Date: 20130730
  Receipt Date: 20130730
  Transmission Date: 20140515
  Serious: Yes (Hospitalization, Other)
  Sender: FDA-Public Use
  Company Number: US-JNJFOC-20130203641

PATIENT
  Age: 70 Year
  Sex: Male
  Weight: 92.99 kg

DRUGS (10)
  1. ZYTIGA [Suspect]
     Indication: PROSTATE CANCER
     Dosage: 250MG*4
     Route: 048
     Dates: start: 20120813, end: 201301
  2. METOPROLOL [Suspect]
     Indication: ATRIAL FIBRILLATION
     Route: 065
     Dates: start: 201301
  3. METOPROLOL [Suspect]
     Indication: ATRIAL FIBRILLATION
     Route: 065
     Dates: start: 201301
  4. PREDNISONE [Concomitant]
     Indication: PROSTATE CANCER
     Route: 048
     Dates: start: 201208, end: 201301
  5. FLUTICASONE W/SALMETEROL [Concomitant]
     Indication: PRODUCT USED FOR UNKNOWN INDICATION
     Route: 065
  6. LEXAPRO [Concomitant]
     Indication: PRODUCT USED FOR UNKNOWN INDICATION
     Route: 065
  7. ZOFRAN [Concomitant]
     Indication: PRODUCT USED FOR UNKNOWN INDICATION
     Route: 065
  8. ZOLADEX [Concomitant]
     Indication: PRODUCT USED FOR UNKNOWN INDICATION
     Route: 065
  9. DEXAMETHASONE [Concomitant]
     Indication: PRODUCT USED FOR UNKNOWN INDICATION
     Route: 065
  10. ASPIRIN [Concomitant]
     Indication: PRODUCT USED FOR UNKNOWN INDICATION
     Route: 065

REACTIONS (6)
  - Ventricular extrasystoles [Recovered/Resolved]
  - Atrial fibrillation [Recovered/Resolved]
  - Aortic valve incompetence [Unknown]
  - Pericardial effusion [Unknown]
  - Hypotension [Unknown]
  - Asthenia [Unknown]
